FAERS Safety Report 7813049-3 (Version None)
Quarter: 2011Q4

REPORT INFORMATION
  Report Type: 
  Country: None (occurrence: None)
  Receive Date: 20111013
  Receipt Date: 20111001
  Transmission Date: 20120403
  Serious: Yes (Other)
  Sender: FDA-Public Use
  Company Number: PHHY2011DE88146

PATIENT
  Age: 54 Year
  Sex: Male

DRUGS (3)
  1. TACROLIMUS [Concomitant]
  2. MYCOPHENOLATE MOFETIL [Suspect]
     Indication: PANCREAS TRANSPLANT
     Dosage: UNK UKN, UNK
  3. STEROIDS NOS [Concomitant]

REACTIONS (6)
  - SYSTEMIC INFLAMMATORY RESPONSE SYNDROME [None]
  - LEUKOCYTOSIS [None]
  - MYALGIA [None]
  - C-REACTIVE PROTEIN INCREASED [None]
  - PYREXIA [None]
  - CHILLS [None]
